FAERS Safety Report 7991269-5 (Version None)
Quarter: 2011Q4

REPORT INFORMATION
  Report Type: 
  Country: None (occurrence: None)
  Receive Date: 20111219
  Receipt Date: 20111213
  Transmission Date: 20120403
  Serious: Yes (Hospitalization, Disabling)
  Sender: FDA-Public Use
  Company Number: FR-MERCK-1111USA01085

PATIENT
  Age: 45 Year
  Sex: Female
  Weight: 43 kg

DRUGS (8)
  1. ZERIT [Concomitant]
     Route: 065
  2. TRUVADA [Concomitant]
     Indication: HIV INFECTION
     Route: 048
     Dates: start: 20090422
  3. ISENTRESS [Suspect]
     Indication: HIV INFECTION
     Route: 048
     Dates: start: 20090422
  4. TRIZIVIR [Concomitant]
     Route: 065
  5. VISTIDE [Concomitant]
     Route: 065
  6. GANCICLOVIR SODIUM [Concomitant]
     Route: 065
  7. VIRACEPT [Concomitant]
     Route: 065
  8. EPIVIR [Concomitant]
     Route: 065

REACTIONS (1)
  - OSTEONECROSIS [None]
